FAERS Safety Report 20224526 (Version 1)
Quarter: 2021Q4

REPORT INFORMATION
  Report Type: Spontaneous
  Country: UZ (occurrence: UZ)
  Receive Date: 20211223
  Receipt Date: 20211223
  Transmission Date: 20220304
  Serious: Yes (Death)
  Sender: FDA-Public Use
  Company Number: UZ-JNJFOC-20211239054

PATIENT
  Age: 70 Year
  Sex: Female
  Weight: 55 kg

DRUGS (4)
  1. SIRTURO [Suspect]
     Active Substance: BEDAQUILINE FUMARATE
     Indication: Tuberculosis
     Dosage: 400
     Route: 048
     Dates: start: 20210924, end: 20210929
  2. CLOFAZIMINE [Suspect]
     Active Substance: CLOFAZIMINE
     Indication: Tuberculosis
     Dosage: 100
     Route: 048
     Dates: start: 20210924, end: 20210929
  3. LEVOFLOXACIN [Suspect]
     Active Substance: LEVOFLOXACIN
     Indication: Tuberculosis
     Dosage: 1000
     Route: 048
     Dates: start: 20210924, end: 20210929
  4. LINEZOLID [Suspect]
     Active Substance: LINEZOLID
     Indication: Tuberculosis
     Dosage: 600
     Route: 048
     Dates: start: 20210924, end: 20210929

REACTIONS (3)
  - Cardiac failure acute [Fatal]
  - Hypovolaemic shock [Fatal]
  - Pulmonary haemorrhage [Fatal]
